FAERS Safety Report 20730723 (Version 2)
Quarter: 2024Q2

REPORT INFORMATION
  Report Type: Spontaneous
  Country: US (occurrence: US)
  Receive Date: 20220420
  Receipt Date: 20240415
  Transmission Date: 20240716
  Serious: No
  Sender: FDA-Public Use
  Company Number: US-ASTELLAS-2021US048853

PATIENT
  Age: 80 Year
  Sex: Female

DRUGS (4)
  1. LEXISCAN [Suspect]
     Active Substance: REGADENOSON
     Indication: Cardiac stress test
     Dosage: UNK UNK, UNKNOWN FREQ. (RECEIVED APPROXIMATELY HALF OF HER DOSE)
     Route: 042
     Dates: start: 20211216, end: 20211216
  2. LEXISCAN [Suspect]
     Active Substance: REGADENOSON
     Indication: Cardiac stress test
     Dosage: UNK UNK, UNKNOWN FREQ. (RECEIVED APPROXIMATELY HALF OF HER DOSE)
     Route: 042
     Dates: start: 20211216, end: 20211216
  3. LEXISCAN [Suspect]
     Active Substance: REGADENOSON
     Indication: Cardiac stress test
     Dosage: UNK UNK, UNKNOWN FREQ. (RECEIVED APPROXIMATELY HALF OF HER DOSE)
     Route: 042
     Dates: start: 20211216, end: 20211216
  4. LEXISCAN [Suspect]
     Active Substance: REGADENOSON
     Indication: Cardiac stress test
     Dosage: UNK UNK, UNKNOWN FREQ. (RECEIVED APPROXIMATELY HALF OF HER DOSE)
     Route: 042
     Dates: start: 20211216, end: 20211216

REACTIONS (6)
  - Injection site extravasation [Unknown]
  - Injection site erythema [Unknown]
  - Injection site swelling [Unknown]
  - Injection site pain [Unknown]
  - Nausea [Recovered/Resolved]
  - Underdose [Unknown]

NARRATIVE: CASE EVENT DATE: 20211216
